FAERS Safety Report 19735029 (Version 1)
Quarter: 2021Q3

REPORT INFORMATION
  Report Type: Spontaneous
  Country: GB (occurrence: GB)
  Receive Date: 20210823
  Receipt Date: 20210823
  Transmission Date: 20211014
  Serious: Yes (Other)
  Sender: FDA-Public Use
  Company Number: GB-SHIELD TX (UK) LTD-GB-STX-21-NOR-0039

PATIENT
  Age: 45 Year
  Sex: Female
  Weight: 57 kg

DRUGS (7)
  1. FLUCONAZOLE. [Concomitant]
     Active Substance: FLUCONAZOLE
     Indication: VULVOVAGINAL CANDIDIASIS
     Dosage: UNK
     Route: 065
     Dates: start: 20210523
  2. IRON [Suspect]
     Active Substance: IRON
     Indication: PRODUCT USED FOR UNKNOWN INDICATION
     Dosage: UNK
     Route: 065
  3. ASTRAZENECA COVID?19 VACCINE [Suspect]
     Active Substance: AZD-1222
     Indication: PRODUCT USED FOR UNKNOWN INDICATION
     Dosage: DOSE 1
     Route: 065
     Dates: start: 20210511
  4. FLUCONAZOLE. [Concomitant]
     Active Substance: FLUCONAZOLE
     Dosage: UNK
     Route: 065
     Dates: start: 20210715
  5. FLUCONAZOLE. [Concomitant]
     Active Substance: FLUCONAZOLE
     Dosage: UNK
     Route: 065
     Dates: start: 20210718
  6. ASTRAZENECA COVID?19 VACCINE [Suspect]
     Active Substance: AZD-1222
     Dosage: DOSE 2
     Route: 065
     Dates: start: 20210727
  7. CANESTEN DUO [Concomitant]
     Indication: VULVOVAGINAL CANDIDIASIS
     Dosage: UNK
     Route: 065
     Dates: start: 20210707, end: 20210712

REACTIONS (4)
  - Heavy menstrual bleeding [Recovered/Resolved]
  - Ovarian cyst [Recovered/Resolved]
  - Skin haemorrhage [Recovering/Resolving]
  - Eye contusion [Unknown]

NARRATIVE: CASE EVENT DATE: 20210512
